FAERS Safety Report 13891099 (Version 1)
Quarter: 2017Q3

REPORT INFORMATION
  Report Type: Spontaneous
  Country: CN (occurrence: CN)
  Receive Date: 20170822
  Receipt Date: 20170822
  Transmission Date: 20171127
  Serious: Yes (Life-Threatening, Other)
  Sender: FDA-Public Use
  Company Number: CN-ACCORD-057405

PATIENT
  Age: 18 Year
  Sex: Male

DRUGS (2)
  1. GEMCITABINE/GEMCITABINE HYDROCHLORIDE= [Suspect]
     Active Substance: GEMCITABINE\GEMCITABINE HYDROCHLORIDE
     Indication: ALVEOLAR SOFT PART SARCOMA METASTATIC
     Dosage: AT A FIXED DOSE RATE OF 900 MG/M^2 BY INTRAVENOUS INFUSION FOR 90 MIN ON D 1 AND 8
     Route: 041
     Dates: start: 2015
  2. DOCETAXEL. [Suspect]
     Active Substance: DOCETAXEL
     Indication: ALVEOLAR SOFT PART SARCOMA METASTATIC
     Dosage: ADMINISTERED INTRAVENOUSLY FOR 60 MIN EVERY 21 D FROM D 8
     Route: 041
     Dates: start: 2015

REACTIONS (1)
  - Drug resistance [Unknown]

NARRATIVE: CASE EVENT DATE: 2015
